FAERS Safety Report 5011272-7 (Version None)
Quarter: 2006Q2

REPORT INFORMATION
  Report Type: 
  Country: None (occurrence: None)
  Receive Date: 20060524
  Receipt Date: 20060516
  Transmission Date: 20061013
  Serious: Yes (Hospitalization)
  Sender: FDA-Public Use
  Company Number: 2006BI007233

PATIENT
  Age: 30 Year
  Sex: Female

DRUGS (5)
  1. AVONEX [Suspect]
     Indication: MULTIPLE SCLEROSIS
     Dosage: 30 UG; QW; IM
     Route: 030
     Dates: start: 19981001, end: 20030801
  2. AVONEX [Suspect]
     Indication: MULTIPLE SCLEROSIS
     Dosage: 30 UG; QW; IM
     Route: 030
     Dates: start: 20030801
  3. ANTIDEPRESSANT MEDICATIONS (NOS) [Concomitant]
  4. PAIN MEDICATIONS (NOS) [Concomitant]
  5. BLADDER MEDICATIONS (NOS) [Concomitant]

REACTIONS (3)
  - FOOT DEFORMITY [None]
  - INFECTION [None]
  - MEMORY IMPAIRMENT [None]
